FAERS Safety Report 24030801 (Version 2)
Quarter: 2024Q3

REPORT INFORMATION
  Report Type: Spontaneous
  Country: US (occurrence: US)
  Receive Date: 20240628
  Receipt Date: 20240703
  Transmission Date: 20241016
  Serious: Yes (Hospitalization, Other)
  Sender: PFIZER
  Company Number: US-PFIZER INC-202400202416

PATIENT
  Age: 75 Year
  Sex: Female
  Weight: 53.98 kg

DRUGS (7)
  1. PAXLOVID [Interacting]
     Active Substance: NIRMATRELVIR\RITONAVIR
     Indication: COVID-19 treatment
     Dosage: 3 TABLETS IN BLISTER PACK, TOOK ALL 3 TABLETS EACH DOSE, TWICE A DAY MORNING AND EVENING, BY MOUTH
     Route: 048
     Dates: start: 20240619, end: 20240626
  2. BUSPIRONE [Suspect]
     Active Substance: BUSPIRONE HYDROCHLORIDE
     Indication: Depression
     Dosage: INITIALLY START WITH 1/3 OF TABLET AND TAKE THAT FOR SEVERAL DAYS, THEN TAKE 2/3 OF TABLET SEVERAL
     Dates: start: 2023
  3. BUSPIRONE [Suspect]
     Active Substance: BUSPIRONE HYDROCHLORIDE
     Dosage: WHOLE TABLET, UNKNOWN DOSE, WAS REGULAR DOSE, 1 TABLET A DAY, BY MOUTH
     Route: 048
     Dates: start: 20240626
  4. CHOLECALCIFEROL [Concomitant]
     Active Substance: CHOLECALCIFEROL
     Dosage: UNK
  5. VITAMIN B COMPLEX [Concomitant]
     Active Substance: CYANOCOBALAMIN\DEXPANTHENOL\NIACINAMIDE\PYRIDOXINE HYDROCHLORIDE\RIBOFLAVIN 5^-PHOSPHATE SODIUM\THIA
     Dosage: UNK
  6. PAROXETINE [Concomitant]
     Active Substance: PAROXETINE
     Indication: Depression
     Dosage: UNK
  7. PRAVASTATIN [Concomitant]
     Active Substance: PRAVASTATIN
     Dosage: 40MG

REACTIONS (4)
  - Drug interaction [Unknown]
  - Catatonia [Unknown]
  - Amnesia [Recovered/Resolved]
  - Inappropriate schedule of product administration [Unknown]

NARRATIVE: CASE EVENT DATE: 20240619
